FAERS Safety Report 24282310 (Version 1)
Quarter: 2024Q3

REPORT INFORMATION
  Report Type: Spontaneous
  Country: TN (occurrence: TN)
  Receive Date: 20240904
  Receipt Date: 20240904
  Transmission Date: 20241016
  Serious: Yes (Other)
  Sender: PFIZER
  Company Number: TN-PFIZER INC-PV202400115934

PATIENT
  Age: 58 Year

DRUGS (1)
  1. SUTENT [Suspect]
     Active Substance: SUNITINIB MALATE
     Indication: Clear cell renal cell carcinoma
     Dosage: 50 MG, CYCLIC (2 WEEKS ON, 2 WEEKS OFF AND NOT A 6 WEEK CYCLE)

REACTIONS (1)
  - Fungal oesophagitis [Unknown]
